FAERS Safety Report 4696065-2 (Version None)
Quarter: 2005Q2

REPORT INFORMATION
  Report Type: 
  Country: None (occurrence: None)
  Receive Date: 20050621
  Receipt Date: 20050615
  Transmission Date: 20051028
  Serious: Yes (Other)
  Sender: FDA-Public Use
  Company Number: US-ROCHE-407973

PATIENT
  Age: 27 Year
  Sex: Female
  Weight: 56 kg

DRUGS (4)
  1. VESANOID [Suspect]
     Indication: ACUTE PROMYELOCYTIC LEUKAEMIA
     Dosage: GIVEN AS 40 MG AM AND 30 MG PM.
     Route: 048
     Dates: start: 20050530, end: 20050614
  2. AUGMENTIN '125' [Concomitant]
     Route: 048
  3. CIPRO [Concomitant]
     Route: 048
  4. VANCOMYCIN [Concomitant]
     Route: 048

REACTIONS (2)
  - GLOMERULONEPHRITIS [None]
  - PHARYNGITIS [None]
